FAERS Safety Report 4845510-8 (Version None)
Quarter: 2005Q4

REPORT INFORMATION
  Report Type: 
  Country: None (occurrence: None)
  Receive Date: 20051201
  Receipt Date: 20051118
  Transmission Date: 20060501
  Serious: Yes (Hospitalization)
  Sender: FDA-Public Use
  Company Number: 2005S1011360

PATIENT
  Age: 69 Year
  Sex: Male
  Weight: 78 kg

DRUGS (18)
  1. NESIRITIDE (2 MCG/KG) [Suspect]
     Indication: CARDIAC FAILURE CONGESTIVE
     Dosage: SEE IMAGE
     Route: 042
     Dates: start: 20051031, end: 20051031
  2. TERAZOSIN HYDROCHLORIDE [Suspect]
     Indication: BENIGN PROSTATIC HYPERPLASIA
     Dosage: 2 MG;QD;PO
     Route: 048
     Dates: end: 20051104
  3. FUROSEMIDE [Suspect]
     Indication: CARDIAC FAILURE CONGESTIVE
     Dosage: 40 MG;QD;ORAL
     Route: 048
  4. IBUPROFEN [Suspect]
     Indication: PAIN
     Dosage: 800 MG;QD;ORAL
     Route: 048
  5. LOSARTAN POTASSIUM [Suspect]
     Indication: CARDIAC FAILURE CONGESTIVE
     Dosage: 50 MG;QD;ORAL
     Route: 048
     Dates: end: 20051104
  6. LOSARTAN POTASSIUM [Suspect]
     Indication: HYPERTENSION
     Dosage: 50 MG;QD;ORAL
     Route: 048
     Dates: end: 20051104
  7. METOPROLOL SUCCINATE [Suspect]
     Indication: CARDIAC FAILURE CONGESTIVE
     Dosage: 50 MG;QD
     Dates: end: 20051104
  8. METOPROLOL SUCCINATE [Suspect]
     Indication: HYPERTENSION
     Dosage: 50 MG;QD
     Dates: end: 20051104
  9. ASPIRIN [Concomitant]
  10. DIPHENHYDRAMINE HCL [Concomitant]
  11. FERROUS SULFATE TAB [Concomitant]
  12. GLIPIZIDE [Concomitant]
  13. METFORMIN [Concomitant]
  14. OMEPRAZOLE [Concomitant]
  15. POTASSIUM CHLORIDE [Concomitant]
  16. SIMVASTATIN [Concomitant]
  17. TIMOLOL MALEATE [Concomitant]
  18. TRAVOPROST [Concomitant]

REACTIONS (5)
  - DEHYDRATION [None]
  - DIZZINESS [None]
  - DRUG INTERACTION [None]
  - HYPOTENSION [None]
  - RENAL FAILURE ACUTE [None]
